FAERS Safety Report 11142040 (Version 2)
Quarter: 2015Q2

REPORT INFORMATION
  Report Type: Report from Study
  Country: BR (occurrence: BR)
  Receive Date: 20150527
  Receipt Date: 20150605
  Transmission Date: 20150821
  Serious: Yes (Death, Other)
  Sender: FDA-Public Use
  Company Number: BR-SA-2015SA071258

PATIENT
  Age: 69 Year
  Sex: Male

DRUGS (2)
  1. LANTUS [Suspect]
     Active Substance: INSULIN GLARGINE
     Indication: DIABETES MELLITUS
     Route: 065
     Dates: start: 201505, end: 201505
  2. NPH INSULIN [Concomitant]
     Active Substance: INSULIN BEEF

REACTIONS (2)
  - Death [Fatal]
  - Syncope [Unknown]

NARRATIVE: CASE EVENT DATE: 201505
